FAERS Safety Report 9764673 (Version 1)
Quarter: 2013Q4

REPORT INFORMATION
  Report Type: Spontaneous
  Country: US (occurrence: None)
  Receive Date: 20131216
  Receipt Date: 20131216
  Transmission Date: 20140711
  Serious: Yes (Other)
  Sender: FDA-Public Use
  Company Number: None

PATIENT
  Age: 62 Year
  Sex: Female
  Weight: 68.04 kg

DRUGS (2)
  1. METOPROLOL [Suspect]
     Indication: CARDIAC DISORDER
     Dosage: 1/2 TABLET; TWICE DAILY
     Route: 048
  2. METOPROLOL [Suspect]
     Indication: BLOOD PRESSURE ABNORMAL
     Dosage: 1/2 TABLET; TWICE DAILY
     Route: 048

REACTIONS (7)
  - Chest discomfort [None]
  - Blood pressure increased [None]
  - Dyspnoea [None]
  - Dizziness [None]
  - Product substitution issue [None]
  - Drug effect decreased [None]
  - Product quality issue [None]
